FAERS Safety Report 5415555-8 (Version None)
Quarter: 2007Q3

REPORT INFORMATION
  Report Type: 
  Country: None (occurrence: None)
  Receive Date: 20070815
  Receipt Date: 20070807
  Transmission Date: 20080115
  Serious: Yes (Death, Congenital Anomaly)
  Sender: FDA-Public Use
  Company Number: B0483228A

PATIENT

DRUGS (4)
  1. BECOTIDE NASAL [Suspect]
     Indication: ASTHMA
  2. VENTOLIN [Suspect]
     Indication: ASTHMA
  3. CIPRALEX [Suspect]
  4. LITHIONIT [Suspect]
     Dosage: 83MG PER DAY

REACTIONS (4)
  - DRUG EXPOSURE DURING PREGNANCY [None]
  - OLIGOHYDRAMNIOS [None]
  - POLYDACTYLY [None]
  - RENAL APLASIA [None]
